FAERS Safety Report 18990585 (Version 4)
Quarter: 2021Q2

REPORT INFORMATION
  Report Type: Report from Study
  Country: CL (occurrence: CL)
  Receive Date: 20210310
  Receipt Date: 20210627
  Transmission Date: 20210717
  Serious: Yes (Death, Other)
  Sender: FDA-Public Use
  Company Number: NVSC2020CL229996

PATIENT
  Age: 72 Year
  Sex: Female

DRUGS (3)
  1. KISQALI [Suspect]
     Active Substance: RIBOCICLIB
     Indication: BREAST CANCER
     Dosage: 600 MG (21 DAYS AND 7 DAYS OF REST)
     Route: 048
     Dates: start: 20200729
  2. KISQALI [Suspect]
     Active Substance: RIBOCICLIB
     Dosage: 200 MG, QD (2 TABLETS)
     Route: 048
  3. KISQALI [Suspect]
     Active Substance: RIBOCICLIB
     Dosage: 400 MG, QD
     Route: 048
     Dates: start: 20200729

REACTIONS (30)
  - Urinary tract infection [Unknown]
  - Lymphocyte count abnormal [Unknown]
  - Macrocytosis [Unknown]
  - Mean cell volume [Unknown]
  - Red blood cell abnormality [Unknown]
  - Blood alkaline phosphatase abnormal [Unknown]
  - Blood creatinine abnormal [Unknown]
  - Platelet count abnormal [Unknown]
  - Aspartate aminotransferase increased [Unknown]
  - Haemoglobin decreased [Unknown]
  - Neutrophil count abnormal [Unknown]
  - Anisocytosis [Unknown]
  - Blood alkaline phosphatase increased [Unknown]
  - Blood albumin decreased [Unknown]
  - Death [Fatal]
  - Leukopenia [Unknown]
  - Abdominal pain [Unknown]
  - Elliptocytosis [Unknown]
  - Hypoglycaemia [Unknown]
  - Urinary tract disorder [Unknown]
  - Gamma-glutamyltransferase abnormal [Unknown]
  - Polychromasia [Unknown]
  - Blood lactate dehydrogenase increased [Unknown]
  - Alanine aminotransferase abnormal [Unknown]
  - Anaemia [Unknown]
  - Blood potassium decreased [Unknown]
  - Poikilocytosis [Unknown]
  - Haematuria [Unknown]
  - Haematocrit abnormal [Unknown]
  - General physical condition abnormal [Unknown]

NARRATIVE: CASE EVENT DATE: 20200812
